FAERS Safety Report 4556968-6 (Version None)
Quarter: 2005Q1

REPORT INFORMATION
  Report Type: 
  Country: None (occurrence: None)
  Receive Date: 20050118
  Receipt Date: 20050107
  Transmission Date: 20050727
  Serious: Yes (Life-Threatening)
  Sender: FDA-Public Use
  Company Number: 2005009071

PATIENT
  Age: 58 Year
  Sex: Male
  Weight: 94 kg

DRUGS (2)
  1. AMLODIPINE [Suspect]
     Indication: HYPERTENSION
     Dosage: UNK (5 MG, UNKNOWN), ORAL
     Route: 048
     Dates: start: 20041030, end: 20041031
  2. TENORETIC 100 [Concomitant]

REACTIONS (1)
  - SUICIDAL IDEATION [None]
